FAERS Safety Report 5195976-1 (Version None)
Quarter: 2006Q4

REPORT INFORMATION
  Report Type: 
  Country: None (occurrence: None)
  Receive Date: 20061220
  Receipt Date: 20061205
  Transmission Date: 20070319
  Serious: Yes (Death, Life-Threatening)
  Sender: FDA-Public Use
  Company Number: THYM-11185

PATIENT
  Age: 63 Year
  Sex: Male

DRUGS (7)
  1. THYMOGLOBULIN [Suspect]
     Indication: PERIPHERAL BLOOD STEM CELL APHERESIS
     Dosage: 0.5 MG/KG QD IV
     Route: 042
     Dates: start: 20061021, end: 20061021
  2. THYMOGLOBULIN [Suspect]
     Indication: PERIPHERAL BLOOD STEM CELL APHERESIS
     Dosage: 2.5 MG/KG QD IV
     Route: 042
     Dates: start: 20061022, end: 20061022
  3. THYMOGLOBULIN [Suspect]
     Indication: PERIPHERAL BLOOD STEM CELL APHERESIS
     Dosage: 3 MG/KG QD IV
     Route: 042
     Dates: start: 20061023, end: 20061023
  4. FLUDARABINE [Concomitant]
  5. BUSULFAN [Concomitant]
  6. METHOTREXATE [Concomitant]
  7. TACROLIMUS [Concomitant]

REACTIONS (10)
  - AGITATION [None]
  - HAEMODIALYSIS [None]
  - LUNG DISORDER [None]
  - MENTAL STATUS CHANGES [None]
  - PULMONARY ALVEOLAR HAEMORRHAGE [None]
  - PYREXIA [None]
  - RENAL FAILURE [None]
  - RESPIRATORY FAILURE [None]
  - RESTLESSNESS [None]
  - TACHYPNOEA [None]
